FAERS Safety Report 14114015 (Version 2)
Quarter: 2017Q4

REPORT INFORMATION
  Report Type: Report from Study
  Country: None (occurrence: GT)
  Receive Date: 20171023
  Receipt Date: 20171121
  Transmission Date: 20180321
  Serious: Yes (Hospitalization, Other)
  Sender: FDA-Public Use
  Company Number: GT-ABBVIE-17S-069-2136428-00

PATIENT
  Sex: Male

DRUGS (4)
  1. PLENDIL [Suspect]
     Active Substance: FELODIPINE
     Indication: HYPERTENSION
     Route: 065
  2. IRON [Concomitant]
     Active Substance: IRON
     Indication: PRODUCT USED FOR UNKNOWN INDICATION
  3. ZEMPLAR [Suspect]
     Active Substance: PARICALCITOL
     Indication: HYPERPARATHYROIDISM SECONDARY
     Route: 042
     Dates: start: 20160802
  4. APROVEL [Concomitant]
     Active Substance: IRBESARTAN
     Indication: HYPERTENSION
     Route: 048

REACTIONS (9)
  - Hip fracture [Recovering/Resolving]
  - Haemoglobin decreased [Not Recovered/Not Resolved]
  - Dysuria [Recovered/Resolved]
  - Pain [Not Recovered/Not Resolved]
  - Joint injury [Recovering/Resolving]
  - Head injury [Recovering/Resolving]
  - Mobility decreased [Not Recovered/Not Resolved]
  - Fall [Recovering/Resolving]
  - Micturition urgency [Recovered/Resolved]

NARRATIVE: CASE EVENT DATE: 20171111
